FAERS Safety Report 14397863 (Version 31)
Quarter: 2019Q3

REPORT INFORMATION
  Report Type: Report from Study
  Country: US (occurrence: US)
  Receive Date: 20180116
  Receipt Date: 20190829
  Transmission Date: 20191004
  Serious: Yes (Life-Threatening, Hospitalization)
  Sender: FDA-Public Use
  Company Number: US-ACTELION-A-NJ2017-155321

PATIENT
  Age: 68 Year
  Sex: Female
  Weight: 68.03 kg

DRUGS (44)
  1. ZANAFLEX [Concomitant]
     Active Substance: TIZANIDINE HYDROCHLORIDE
     Dosage: UNK
     Dates: start: 20170111
  2. ZYRTEC [Concomitant]
     Active Substance: CETIRIZINE HYDROCHLORIDE
     Dosage: UNK
     Dates: start: 20170111
  3. OPSUMIT [Suspect]
     Active Substance: MACITENTAN
     Indication: PULMONARY ARTERIAL HYPERTENSION
     Dosage: 10 MG, QD
     Route: 048
     Dates: start: 20161229
  4. BUMEX [Concomitant]
     Active Substance: BUMETANIDE
     Dosage: UNK
     Dates: start: 20170111
  5. ZOFRAN [Concomitant]
     Active Substance: ONDANSETRON HYDROCHLORIDE
     Dosage: UNK
     Dates: start: 20170111
  6. ZOLOFT [Concomitant]
     Active Substance: SERTRALINE HYDROCHLORIDE
     Dosage: UNK
     Dates: start: 20170111
  7. COLACE [Concomitant]
     Active Substance: DOCUSATE SODIUM
     Dosage: UNK
     Dates: start: 20190514
  8. DIPHENHYDRAMINE. [Concomitant]
     Active Substance: DIPHENHYDRAMINE
     Dosage: UNK
     Dates: start: 20190514
  9. VELETRI [Suspect]
     Active Substance: EPOPROSTENOL
     Dosage: 25 NG/KG, PER MIN
     Route: 042
  10. SILDENAFIL CITRATE. [Concomitant]
     Active Substance: SILDENAFIL CITRATE
  11. PANTOPRAZOLE [Concomitant]
     Active Substance: PANTOPRAZOLE
     Dosage: UNK
     Dates: start: 20170227
  12. VENOFER [Concomitant]
     Active Substance: IRON SUCROSE
     Dosage: UNK
     Dates: start: 20170227
  13. ZOSYN [Concomitant]
     Active Substance: PIPERACILLIN SODIUM\TAZOBACTAM SODIUM
  14. CYCLOBENZAPRINE. [Concomitant]
     Active Substance: CYCLOBENZAPRINE
     Dosage: UNK
     Dates: start: 20190514
  15. OXYGEN. [Concomitant]
     Active Substance: OXYGEN
     Dosage: 6-7 L/MIN, UNK
  16. LEVOTHYROXINE. [Concomitant]
     Active Substance: LEVOTHYROXINE
     Dosage: UNK
     Dates: start: 20170111
  17. LORATADINE. [Concomitant]
     Active Substance: LORATADINE
     Dosage: UNK
     Dates: start: 20170111
  18. LORAZEPAM. [Concomitant]
     Active Substance: LORAZEPAM
     Dosage: UNK
     Dates: start: 20170111
  19. OXYCODONE [Concomitant]
     Active Substance: OXYCODONE
  20. REQUIP [Concomitant]
     Active Substance: ROPINIROLE HYDROCHLORIDE
     Dosage: UNK
     Dates: start: 20170111
  21. VITAMIN D3 [Concomitant]
     Active Substance: CHOLECALCIFEROL
     Dosage: UNK
     Dates: start: 20170111
  22. GAS-X [Concomitant]
     Active Substance: DIMETHICONE
     Dosage: UNK
     Dates: start: 20190409
  23. PROCRIT [Concomitant]
     Active Substance: ERYTHROPOIETIN
  24. SENNA [Concomitant]
     Active Substance: SENNA LEAF\SENNOSIDES\SENNOSIDES A AND B
     Dosage: UNK
     Dates: start: 20170111
  25. VELETRI [Suspect]
     Active Substance: EPOPROSTENOL
     Indication: PULMONARY ARTERIAL HYPERTENSION
     Dosage: 20 NG/KG, PER MIN
     Route: 042
  26. OXYGEN. [Concomitant]
     Active Substance: OXYGEN
     Dosage: 3 L/MIN, UNK
  27. METOLAZONE. [Concomitant]
     Active Substance: METOLAZONE
     Dosage: UNK
     Dates: start: 20170111
  28. ONDANSETRON [Concomitant]
     Active Substance: ONDANSETRON
     Dosage: UNK
     Dates: start: 20170227
  29. FERROUS SULFATE. [Concomitant]
     Active Substance: FERROUS SULFATE
     Dosage: UNK
     Dates: start: 20190409
  30. VELETRI [Suspect]
     Active Substance: EPOPROSTENOL
     Dosage: 18 NG/KG, PER MIN
     Route: 042
  31. ELIQUIS [Concomitant]
     Active Substance: APIXABAN
     Dosage: UNK
     Dates: start: 20170111
  32. CHLOROTHIAZIDE. [Concomitant]
     Active Substance: CHLOROTHIAZIDE
     Dosage: UNK
     Dates: start: 20170111
  33. POTASSIUM CHLORIDE. [Concomitant]
     Active Substance: POTASSIUM CHLORIDE
     Dosage: UNK
     Dates: start: 20170111
  34. ROPINIROLE. [Concomitant]
     Active Substance: ROPINIROLE
     Dosage: UNK
     Dates: start: 20170227
  35. ALDACTONE [Concomitant]
     Active Substance: SPIRONOLACTONE
     Dosage: UNK
     Dates: start: 20190409
  36. ALLOPURINOL. [Concomitant]
     Active Substance: ALLOPURINOL
     Dosage: UNK
     Dates: start: 20190409
  37. FUROSEMIDE. [Concomitant]
     Active Substance: FUROSEMIDE
     Dosage: UNK
     Dates: start: 20190409
  38. TYLENOL [Concomitant]
     Active Substance: ACETAMINOPHEN
     Dosage: UNK
     Dates: start: 20190409
  39. AMBIEN [Concomitant]
     Active Substance: ZOLPIDEM TARTRATE
     Dosage: UNK
     Dates: start: 20170111
  40. DUONEB [Concomitant]
     Active Substance: ALBUTEROL SULFATE\IPRATROPIUM BROMIDE
     Dosage: UNK
     Dates: start: 20170111
  41. OMEPRAZOLE. [Concomitant]
     Active Substance: OMEPRAZOLE
     Dosage: UNK
     Dates: start: 20170111
  42. ACETAMINOPHEN. [Concomitant]
     Active Substance: ACETAMINOPHEN
     Dosage: UNK
     Dates: start: 20170227
  43. VELETRI [Suspect]
     Active Substance: EPOPROSTENOL
     Dosage: 18 NG/KG, PER MIN
     Route: 042
  44. VELETRI [Suspect]
     Active Substance: EPOPROSTENOL
     Dosage: 26 NG/KG, PER MIN
     Route: 042

REACTIONS (66)
  - Respiratory disorder [Recovered/Resolved]
  - Cellulitis [Recovered/Resolved with Sequelae]
  - Upper respiratory tract infection [Recovered/Resolved]
  - Anaemia [Unknown]
  - Nausea [Unknown]
  - Pain in jaw [Unknown]
  - Pain in extremity [Unknown]
  - Condition aggravated [Unknown]
  - Disorientation [Recovered/Resolved]
  - Hyperkalaemia [Recovered/Resolved]
  - Acute kidney injury [Recovered/Resolved with Sequelae]
  - Weight decreased [Unknown]
  - Cardiac failure [Unknown]
  - Device damage [Unknown]
  - Blood creatinine increased [Recovered/Resolved with Sequelae]
  - Malaise [Unknown]
  - Fluid retention [Unknown]
  - Abdominal discomfort [Unknown]
  - Orthopnoea [Recovered/Resolved]
  - Anxiety [Unknown]
  - Arthralgia [Unknown]
  - Back pain [Unknown]
  - Balance disorder [Recovered/Resolved]
  - Weight increased [Unknown]
  - Haemoptysis [Recovered/Resolved with Sequelae]
  - Dialysis [Unknown]
  - Blood potassium increased [Unknown]
  - Urinary tract infection [Unknown]
  - Agitation [Unknown]
  - Sinus disorder [Unknown]
  - Blood count abnormal [Unknown]
  - Complication associated with device [Unknown]
  - Dyspnoea [Unknown]
  - Fluid overload [Unknown]
  - Swelling [Unknown]
  - Nasopharyngitis [Unknown]
  - Magnesium deficiency [Unknown]
  - Transient ischaemic attack [Recovered/Resolved]
  - Dizziness [Recovered/Resolved]
  - Thrombosis [Unknown]
  - Acute pulmonary oedema [Recovered/Resolved]
  - Pneumonia [Unknown]
  - Hypokalaemia [Unknown]
  - Sinusitis [Unknown]
  - Asthenia [Unknown]
  - Confusional state [Unknown]
  - Mental status changes [Recovered/Resolved]
  - Coordination abnormal [Recovered/Resolved]
  - Clostridium difficile infection [Unknown]
  - Right ventricular failure [Unknown]
  - Rash [Unknown]
  - Bronchitis [Unknown]
  - Arthritis [Unknown]
  - Pulmonary arterial hypertension [Unknown]
  - Oedema peripheral [Recovered/Resolved with Sequelae]
  - Epistaxis [Recovered/Resolved with Sequelae]
  - Gastrointestinal haemorrhage [Recovered/Resolved with Sequelae]
  - Fatigue [Recovered/Resolved]
  - Waist circumference increased [Unknown]
  - Surgery [Unknown]
  - Tremor [Unknown]
  - Diarrhoea [Unknown]
  - Orthostatic hypotension [Unknown]
  - Vertigo [Unknown]
  - Blood phosphorus increased [Unknown]
  - Oedema [Recovered/Resolved]

NARRATIVE: CASE EVENT DATE: 2017
